FAERS Safety Report 4957668-0 (Version None)
Quarter: 2006Q1

REPORT INFORMATION
  Report Type: 
  Country: None (occurrence: None)
  Receive Date: 20060330
  Receipt Date: 20050617
  Transmission Date: 20060701
  Serious: Yes (Hospitalization)
  Sender: FDA-Public Use
  Company Number: PHBS2005AT08775

PATIENT
  Age: 60 Year
  Sex: Male

DRUGS (10)
  1. ZOMETA [Suspect]
     Indication: PLASMACYTOSIS
     Dosage: 4 MG ONCE/MONTH
     Route: 042
     Dates: start: 20020108
  2. AREDIA [Suspect]
     Indication: PLASMACYTOSIS
     Dosage: UNK, UNK
     Route: 065
     Dates: start: 19980401, end: 20011201
  3. LODRONAT [Suspect]
     Indication: PLASMACYTOSIS
     Dosage: UNK, UNK
     Route: 065
     Dates: start: 19970101, end: 19980101
  4. ALKERAN [Concomitant]
     Dates: end: 19991101
  5. PREDNISOLONE [Concomitant]
     Dates: end: 19991101
  6. INTRON A [Concomitant]
     Dates: start: 20000101, end: 20000401
  7. ROFERON [Concomitant]
     Dates: start: 20010801, end: 20030101
  8. VINCRISTINE + ADRIAMYCIN + DEXAMETHASONE [Concomitant]
     Dates: end: 20030601
  9. THALIDOMIDE [Concomitant]
     Dates: start: 20030301, end: 20050501
  10. VELCADE [Concomitant]
     Dates: start: 20050501

REACTIONS (7)
  - BONE TRIMMING [None]
  - FISTULA REPAIR [None]
  - OSTEOLYSIS [None]
  - OSTEOMYELITIS [None]
  - OSTEONECROSIS [None]
  - SEQUESTRECTOMY [None]
  - SURGERY [None]
